FAERS Safety Report 16961041 (Version 1)
Quarter: 2019Q4

REPORT INFORMATION
  Report Type: Report from Study
  Country: US (occurrence: US)
  Receive Date: 20191025
  Receipt Date: 20191025
  Transmission Date: 20200122
  Serious: Yes (Hospitalization, Other)
  Sender: FDA-Public Use
  Company Number: US-UCBSA-2019044608

PATIENT
  Age: 38 Year
  Sex: Female

DRUGS (1)
  1. LEVETIRACETAM. [Suspect]
     Active Substance: LEVETIRACETAM
     Indication: SEIZURE
     Dosage: 750 MG 3 TABLETS A DAY

REACTIONS (2)
  - Seizure [Not Recovered/Not Resolved]
  - Road traffic accident [Not Recovered/Not Resolved]

NARRATIVE: CASE EVENT DATE: 20190821
